FAERS Safety Report 5205847-X (Version None)
Quarter: 2007Q1

REPORT INFORMATION
  Report Type: 
  Country: None (occurrence: None)
  Receive Date: 20070105
  Receipt Date: 20070105
  Transmission Date: 20070707
  Serious: Yes (Hospitalization)
  Sender: FDA-Public Use
  Company Number: None

PATIENT
  Sex: Female
  Weight: 83.9154 kg

DRUGS (18)
  1. FOSINOPRIL SODIUM [Suspect]
     Indication: DIABETES MELLITUS
     Dosage: 40 MG DAILY PO
     Route: 048
     Dates: start: 20020801, end: 20060701
  2. FOSINOPRIL SODIUM [Suspect]
     Indication: HYPERTENSION
     Dosage: 40 MG DAILY PO
     Route: 048
     Dates: start: 20020801, end: 20060701
  3. INDOMETHACIN [Suspect]
     Indication: ARTHRALGIA
     Dosage: 25 MG TID PO
     Route: 048
     Dates: start: 20000101, end: 20060701
  4. INDOMETHACIN [Suspect]
     Indication: ARTHRITIS
     Dosage: 25 MG TID PO
     Route: 048
     Dates: start: 20000101, end: 20060701
  5. METFORMIN [Concomitant]
  6. FLUNISOLIDE [Concomitant]
  7. FOSINOPRIL SODIUM [Concomitant]
  8. GEMFIBROZIL [Concomitant]
  9. GLYBURIDE [Concomitant]
  10. CYCLOBENZAPRINE HCL [Concomitant]
  11. SERTRALINE [Concomitant]
  12. CHLORPHENIRAMINE MALEATE [Concomitant]
  13. CLONAZEPAM [Concomitant]
  14. INDOMETHACIN [Concomitant]
  15. MORPHINE SULFATE [Concomitant]
  16. ATENOLOL [Concomitant]
  17. CODEINE/APAP [Concomitant]
  18. HYDROCHLOROTHIAZIDE [Concomitant]

REACTIONS (4)
  - DIARRHOEA [None]
  - HYPERKALAEMIA [None]
  - METABOLIC ACIDOSIS [None]
  - RENAL FAILURE [None]
